FAERS Safety Report 18273456 (Version 1)
Quarter: 2020Q3

REPORT INFORMATION
  Report Type: Spontaneous
  Country: US (occurrence: US)
  Receive Date: 20200916
  Receipt Date: 20200916
  Transmission Date: 20201103
  Serious: No
  Sender: FDA-Public Use
  Company Number: US-AKRON, INC.-2090796

PATIENT
  Sex: Female

DRUGS (15)
  1. METRONIDAZOLE. [Suspect]
     Active Substance: METRONIDAZOLE
  2. CYCLOBENZAPRINE. [Suspect]
     Active Substance: CYCLOBENZAPRINE
  3. CHANTIX [Suspect]
     Active Substance: VARENICLINE TARTRATE
  4. HYDROCODONE BITARTRATE AND ACETAMINOPHEN [Suspect]
     Active Substance: ACETAMINOPHEN\HYDROCODONE BITARTRATE
  5. SYMBICORT [Suspect]
     Active Substance: BUDESONIDE\FORMOTEROL FUMARATE DIHYDRATE
  6. NABUMETONE. [Suspect]
     Active Substance: NABUMETONE
  7. LATANOPROST. [Suspect]
     Active Substance: LATANOPROST
  8. NAPROXEN. [Suspect]
     Active Substance: NAPROXEN
  9. FAMOTIDINE. [Suspect]
     Active Substance: FAMOTIDINE
  10. IBUPROFEN. [Suspect]
     Active Substance: IBUPROFEN
  11. FLUOXETINE [Suspect]
     Active Substance: FLUOXETINE HYDROCHLORIDE
  12. FENTANYL CITRATE. [Suspect]
     Active Substance: FENTANYL CITRATE
  13. BETAMETHASONE SODIUM PHOSPHATE AND BETAMETHASONE ACETATE [Suspect]
     Active Substance: BETAMETHASONE ACETATE\BETAMETHASONE SODIUM PHOSPHATE
  14. PANTOPRAZOLE SODIUM. [Suspect]
     Active Substance: PANTOPRAZOLE SODIUM
  15. LEVOTHYROXINE. [Suspect]
     Active Substance: LEVOTHYROXINE

REACTIONS (4)
  - Depression [Unknown]
  - Hospitalisation [Unknown]
  - Eating disorder symptom [Unknown]
  - Suicide attempt [Unknown]
